FAERS Safety Report 4464829-6 (Version None)
Quarter: 2004Q4

REPORT INFORMATION
  Report Type: 
  Country: None (occurrence: None)
  Receive Date: 20041004
  Receipt Date: 20031015
  Transmission Date: 20050328
  Serious: No
  Sender: FDA-Public Use
  Company Number: 352028

PATIENT
  Age: 58 Year
  Sex: Male
  Weight: 93.6 kg

DRUGS (9)
  1. COREG [Suspect]
     Indication: ILL-DEFINED DISORDER
     Route: 048
  2. ACCUPRIL [Concomitant]
     Dosage: 10MG PER DAY
     Route: 048
     Dates: start: 20000101
  3. LIPITOR [Concomitant]
     Dosage: 20MG PER DAY
     Route: 048
     Dates: start: 20000101
  4. ASPIRIN [Concomitant]
     Route: 048
     Dates: start: 20000101
  5. LANOXIN [Concomitant]
     Dosage: .25MG PER DAY
     Route: 048
     Dates: start: 20000101
  6. LASIX [Concomitant]
     Dosage: 40MG PER DAY
     Route: 048
     Dates: start: 20000101
  7. ADVAIR DISKUS 100/50 [Concomitant]
     Route: 055
     Dates: start: 20020101
  8. SINGULAIR [Concomitant]
     Route: 048
     Dates: start: 20020101
  9. COMBIVENT [Concomitant]
     Route: 048

REACTIONS (1)
  - SLEEP DISORDER [None]
